FAERS Safety Report 14196623 (Version 1)
Quarter: 2017Q4

REPORT INFORMATION
  Report Type: Report from Study
  Country: US (occurrence: US)
  Receive Date: 20171116
  Receipt Date: 20171116
  Transmission Date: 20180321
  Serious: Yes (Hospitalization, Other)
  Sender: FDA-Public Use
  Company Number: US-MYLANLABS-2017M1070793

PATIENT
  Age: 6 Year
  Sex: Female
  Weight: 47 kg

DRUGS (10)
  1. CLARAVIS [Suspect]
     Active Substance: ISOTRETINOIN
     Indication: ACNE CYSTIC
     Dosage: 20 MG, QD
     Route: 048
     Dates: start: 2017
  2. CLARAVIS [Suspect]
     Active Substance: ISOTRETINOIN
     Dosage: 40 MG, QD
     Route: 048
     Dates: start: 2017
  3. YAZ [Concomitant]
     Active Substance: DROSPIRENONE\ETHINYL ESTRADIOL
     Indication: PRODUCT USED FOR UNKNOWN INDICATION
     Dosage: UNK
  4. AMNESTEEM [Suspect]
     Active Substance: ISOTRETINOIN
     Indication: ACNE CYSTIC
     Dosage: 20 MG, QD
     Route: 048
     Dates: start: 2017
  5. ACCUTANE [Suspect]
     Active Substance: ISOTRETINOIN
     Dosage: 60 MG, QD
     Route: 048
     Dates: start: 2017
  6. AMNESTEEM [Suspect]
     Active Substance: ISOTRETINOIN
     Dosage: 40 MG, QD
     Route: 048
     Dates: start: 2017
  7. AMNESTEEM [Suspect]
     Active Substance: ISOTRETINOIN
     Dosage: 60 MG, QD
     Route: 048
     Dates: start: 2017, end: 20171016
  8. CLARAVIS [Suspect]
     Active Substance: ISOTRETINOIN
     Dosage: 60 MG, QD
     Route: 048
     Dates: start: 2017
  9. ACCUTANE [Suspect]
     Active Substance: ISOTRETINOIN
     Indication: ACNE CYSTIC
     Dosage: 20 MG, QD
     Route: 048
     Dates: start: 2017
  10. ACCUTANE [Suspect]
     Active Substance: ISOTRETINOIN
     Dosage: 40 MG, QD
     Route: 048
     Dates: start: 2017

REACTIONS (9)
  - Dry skin [Recovered/Resolved]
  - Circulatory collapse [Not Recovered/Not Resolved]
  - Syncope [Not Recovered/Not Resolved]
  - Arthralgia [Recovered/Resolved]
  - Head discomfort [Not Recovered/Not Resolved]
  - Burning sensation [Not Recovered/Not Resolved]
  - Dizziness [Not Recovered/Not Resolved]
  - Feeling hot [Not Recovered/Not Resolved]
  - Muscular weakness [Not Recovered/Not Resolved]

NARRATIVE: CASE EVENT DATE: 2017
